FAERS Safety Report 5482654-4 (Version None)
Quarter: 2007Q4

REPORT INFORMATION
  Report Type: 
  Country: None (occurrence: None)
  Receive Date: 20071011
  Receipt Date: 20071005
  Transmission Date: 20080405
  Serious: Yes (Other)
  Sender: FDA-Public Use
  Company Number: FRWYE691521MAY07

PATIENT
  Sex: Female

DRUGS (1)
  1. EFFEXOR XR [Suspect]
     Indication: DEPRESSION
     Route: 048
     Dates: start: 20030101, end: 20070101

REACTIONS (5)
  - ANAEMIA [None]
  - INFECTION [None]
  - NEUTROPENIA [None]
  - NON-HODGKIN'S LYMPHOMA RECURRENT [None]
  - PYREXIA [None]
